FAERS Safety Report 8619022-X (Version None)
Quarter: 2012Q3

REPORT INFORMATION
  Report Type: 
  Country: None (occurrence: None)
  Receive Date: 20120824
  Receipt Date: 20120820
  Transmission Date: 20120928
  Serious: Yes (Other)
  Sender: FDA-Public Use
  Company Number: PHHY2012CA057167

PATIENT
  Sex: Female

DRUGS (1)
  1. ZOLEDRONOC ACID [Suspect]
     Indication: OSTEOPOROSIS
     Dosage: UNK
     Route: 042
     Dates: start: 20101013

REACTIONS (5)
  - ANKLE FRACTURE [None]
  - FIBULA FRACTURE [None]
  - FALL [None]
  - TIBIA FRACTURE [None]
  - TRAUMATIC FRACTURE [None]
